FAERS Safety Report 24190384 (Version 2)
Quarter: 2024Q3

REPORT INFORMATION
  Report Type: Spontaneous
  Country: US (occurrence: US)
  Receive Date: 20240808
  Receipt Date: 20240913
  Transmission Date: 20241016
  Serious: Yes (Life-Threatening, Hospitalization)
  Sender: TEVA
  Company Number: US-TEVA-VS-3228273

PATIENT
  Age: 43 Year
  Sex: Female

DRUGS (3)
  1. MORPHINE [Suspect]
     Active Substance: MORPHINE
     Indication: Back pain
     Dosage: HIGH DAILY DOSES (UNSPECIFIED)
     Route: 065
  2. OXYCODONE [Suspect]
     Active Substance: OXYCODONE
     Indication: Back pain
     Dosage: HIGH DAILY DOSES (UNSPECIFIED)
     Route: 065
  3. MONTELUKAST [Suspect]
     Active Substance: MONTELUKAST SODIUM
     Indication: Asthma
     Route: 065

REACTIONS (6)
  - Drug ineffective [Unknown]
  - Asthma [Recovering/Resolving]
  - Respiratory acidosis [Recovering/Resolving]
  - Acute respiratory failure [Recovering/Resolving]
  - Drug dependence [Unknown]
  - Respiratory failure [Recovering/Resolving]
